FAERS Safety Report 5283560-0 (Version None)
Quarter: 2007Q1

REPORT INFORMATION
  Report Type: 
  Country: None (occurrence: None)
  Receive Date: 20070329
  Receipt Date: 20070329
  Transmission Date: 20070707
  Serious: Yes (Hospitalization)
  Sender: FDA-Public Use
  Company Number: None

PATIENT
  Age: 68 Year
  Sex: Male

DRUGS (12)
  1. WARFARIN SODIUM [Suspect]
     Indication: ATRIAL FIBRILLATION
     Dosage: 5MG HS EXC 7.5MG W/F
     Dates: start: 20060602, end: 20070222
  2. FINASTERIDE [Concomitant]
  3. FLUDROCORTISONE ACETATE [Concomitant]
  4. LISINOPRIL [Concomitant]
  5. LORATADINE [Concomitant]
  6. METOPROLOL SUCCINATE [Concomitant]
  7. TERAZOSIN HCL [Concomitant]
  8. SIMVASTATIN [Concomitant]
  9. ASPIRIN [Concomitant]
  10. WARFARIN SODIUM [Concomitant]
  11. COMBIVENT [Concomitant]
  12. METRONIDAZOLE [Concomitant]

REACTIONS (8)
  - DRUG INTERACTION [None]
  - DRUG PRESCRIBING ERROR [None]
  - DUODENITIS HAEMORRHAGIC [None]
  - GASTRITIS HAEMORRHAGIC [None]
  - HAEMATOCRIT DECREASED [None]
  - HAEMORRHAGE [None]
  - INTERNATIONAL NORMALISED RATIO INCREASED [None]
  - MELAENA [None]
